FAERS Safety Report 10014450 (Version 2)
Quarter: 2014Q1

REPORT INFORMATION
  Report Type: Spontaneous
  Country: JP (occurrence: JP)
  Receive Date: 20140317
  Receipt Date: 20140325
  Transmission Date: 20141002
  Serious: Yes (Death)
  Sender: FDA-Public Use
  Company Number: JP-CELGENEUS-087-21660-14031641

PATIENT
  Age: 67 Year
  Sex: Male
  Weight: 63 kg

DRUGS (6)
  1. ABRAXANE [Suspect]
     Indication: METASTATIC GASTRIC CANCER
     Dosage: 385 MILLIGRAM
     Route: 041
     Dates: start: 20131024, end: 20131024
  2. RINDERON [Suspect]
     Indication: PRODUCT USED FOR UNKNOWN INDICATION
     Dosage: 2 MILLIGRAM
     Route: 048
     Dates: start: 20131024, end: 20131103
  3. TRAMAL [Suspect]
     Indication: PRODUCT USED FOR UNKNOWN INDICATION
     Dosage: 100 MILLIGRAM
     Route: 048
     Dates: start: 20131029, end: 20131103
  4. LOXOPROFEN [Suspect]
     Indication: ARTHRALGIA
     Route: 048
     Dates: start: 20131024
  5. TEPRENONE [Concomitant]
     Indication: PRODUCT USED FOR UNKNOWN INDICATION
     Route: 048
     Dates: start: 20131024
  6. ENSURE [Concomitant]
     Indication: PARENTERAL NUTRITION
     Dosage: 1000 MILLILITER
     Route: 048
     Dates: start: 20131024, end: 20131103

REACTIONS (1)
  - Sudden death [Fatal]
